FAERS Safety Report 24657764 (Version 1)
Quarter: 2024Q4

REPORT INFORMATION
  Report Type: Spontaneous
  Country: BO (occurrence: BO)
  Receive Date: 20241125
  Receipt Date: 20241125
  Transmission Date: 20250115
  Serious: Yes (Death)
  Sender: ROCHE
  Company Number: BO-ROCHE-10000139940

PATIENT

DRUGS (1)
  1. TECENTRIQ [Suspect]
     Active Substance: ATEZOLIZUMAB
     Indication: Hepatic cancer
     Dosage: FREQUENCY WAS NOT REPORTED, 7 CYCLES
     Route: 065

REACTIONS (2)
  - Disease progression [Fatal]
  - Encephalopathy [Fatal]
